FAERS Safety Report 20227949 (Version 1)
Quarter: 2021Q4

REPORT INFORMATION
  Report Type: Spontaneous
  Country: ES (occurrence: ES)
  Receive Date: 20211224
  Receipt Date: 20211224
  Transmission Date: 20220303
  Serious: Yes (Other)
  Sender: FDA-Public Use
  Company Number: ES-EMA-DD-20211208-zaviour_n-135132

PATIENT
  Age: 33 Year
  Sex: Female
  Weight: 78.4 kg

DRUGS (5)
  1. CARBOPLATIN [Suspect]
     Active Substance: CARBOPLATIN
     Indication: Breast cancer
     Dosage: 300 MG
     Route: 042
     Dates: start: 20210128, end: 20210513
  2. PACLITAXEL [Suspect]
     Active Substance: PACLITAXEL
     Indication: Breast cancer
     Dosage: 160 MG
     Route: 042
     Dates: start: 20210128, end: 20210513
  3. ATEZOLIZUMAB [Suspect]
     Active Substance: ATEZOLIZUMAB
     Indication: Breast cancer
     Dosage: 1200 MG
     Route: 041
     Dates: start: 20210128, end: 20210709
  4. PERTUZUMAB [Suspect]
     Active Substance: PERTUZUMAB
     Indication: Breast cancer
     Dosage: 420 MG
     Route: 042
     Dates: start: 20210128, end: 20210709
  5. TRASTUZUMAB [Suspect]
     Active Substance: TRASTUZUMAB
     Indication: Breast cancer
     Dosage: 500 MG
     Route: 041
     Dates: start: 20210128, end: 20210709

REACTIONS (2)
  - Abortion spontaneous [Unknown]
  - Maternal exposure during pregnancy [Unknown]

NARRATIVE: CASE EVENT DATE: 20210815
